FAERS Safety Report 7877289-X (Version None)
Quarter: 2011Q4

REPORT INFORMATION
  Report Type: 
  Country: None (occurrence: None)
  Receive Date: 20111031
  Receipt Date: 20111026
  Transmission Date: 20120403
  Serious: Yes (Hospitalization)
  Sender: FDA-Public Use
  Company Number: TR-ABBOTT-11P-161-0868623-00

PATIENT
  Age: 70 Year
  Sex: Female
  Weight: 65 kg

DRUGS (1)
  1. TARKA [Suspect]
     Indication: HYPERTENSION
     Dosage: 180/2MG DAILY
     Route: 048
     Dates: start: 20110201, end: 20110623

REACTIONS (3)
  - BRONCHOSPASM [None]
  - SWOLLEN TONGUE [None]
  - ANGIOEDEMA [None]
